FAERS Safety Report 5334122-8 (Version None)
Quarter: 2007Q2

REPORT INFORMATION
  Report Type: 
  Country: None (occurrence: None)
  Receive Date: 20070308
  Receipt Date: 20070130
  Transmission Date: 20071010
  Serious: No
  Sender: FDA-Public Use
  Company Number: 2007-BP-01634PF

PATIENT
  Age: 70 Year
  Sex: Female

DRUGS (4)
  1. SPIRIVA [Suspect]
     Dosage: (18 MCG), IH
     Route: 055
     Dates: start: 20061001, end: 20070126
  2. SEREVENT [Concomitant]
  3. TYLENOL [Concomitant]
  4. OXYGEN (OXYGEN) [Concomitant]

REACTIONS (11)
  - CONSTIPATION [None]
  - DECREASED APPETITE [None]
  - DRY MOUTH [None]
  - FATIGUE [None]
  - HYPOAESTHESIA [None]
  - MYALGIA [None]
  - OXYGEN SATURATION DECREASED [None]
  - PHARYNGOLARYNGEAL PAIN [None]
  - RASH PRURITIC [None]
  - URINARY INCONTINENCE [None]
  - VISION BLURRED [None]
